FAERS Safety Report 8552191-9 (Version None)
Quarter: 2012Q3

REPORT INFORMATION
  Report Type: 
  Country: None (occurrence: None)
  Receive Date: 20120731
  Receipt Date: 20120720
  Transmission Date: 20120928
  Serious: No
  Sender: FDA-Public Use
  Company Number: US-BIOGENIDEC-2012BI026572

PATIENT
  Sex: Female

DRUGS (1)
  1. AVONEX [Suspect]
     Indication: MULTIPLE SCLEROSIS
     Route: 030
     Dates: start: 19981002

REACTIONS (4)
  - TEMPERATURE INTOLERANCE [None]
  - LYMPHOEDEMA [None]
  - GENERAL SYMPTOM [None]
  - INJECTION SITE PAIN [None]
